FAERS Safety Report 8600559-4 (Version None)
Quarter: 2012Q3

REPORT INFORMATION
  Report Type: 
  Country: None (occurrence: None)
  Receive Date: 20120817
  Receipt Date: 20120809
  Transmission Date: 20120928
  Serious: Yes (Other)
  Sender: FDA-Public Use
  Company Number: US-BAYER-2012-082149

PATIENT
  Age: 37 Year
  Sex: Female
  Weight: 101.59 kg

DRUGS (9)
  1. YAZ [Suspect]
     Indication: UTERINE HAEMORRHAGE
  2. ADVIL [Concomitant]
     Dosage: UNK
     Dates: start: 20100825
  3. MEDROL [Concomitant]
     Dosage: UNK
     Dates: start: 20100827
  4. MOTRIN [Concomitant]
  5. IBUPROFEN [Concomitant]
     Indication: PAIN
  6. NORCO [Concomitant]
     Indication: PAIN
     Dosage: UNK
     Dates: start: 20100827
  7. ZYRTEC [Concomitant]
     Dosage: UNK
     Dates: start: 20100720
  8. CLARITIN [Concomitant]
     Dosage: UNK
     Dates: start: 20100720
  9. TYLENOL [Concomitant]
     Indication: PAIN

REACTIONS (1)
  - DEEP VEIN THROMBOSIS [None]
